FAERS Safety Report 14195066 (Version 1)
Quarter: 2017Q4

REPORT INFORMATION
  Report Type: Spontaneous
  Country: RO (occurrence: RO)
  Receive Date: 20171116
  Receipt Date: 20171116
  Transmission Date: 20180321
  Serious: No
  Sender: FDA-Public Use
  Company Number: RO-B. BRAUN MEDICAL INC.-2034289

PATIENT
  Age: 33 Year
  Sex: Female
  Weight: 45 kg

DRUGS (3)
  1. METRONIDAZOLE. [Suspect]
     Active Substance: METRONIDAZOLE
     Route: 042
     Dates: start: 20170402, end: 20170402
  2. GENTAMICIN. [Concomitant]
     Active Substance: GENTAMICIN
     Route: 030
     Dates: start: 20170331, end: 20170402
  3. CEFORT [Concomitant]
     Active Substance: CEFTRIAXONE SODIUM
     Route: 042
     Dates: start: 20170331, end: 20170402

REACTIONS (6)
  - Pruritus [None]
  - Dizziness [None]
  - Vomiting [None]
  - Dermatitis allergic [None]
  - Asthenia [None]
  - Nausea [None]
